FAERS Safety Report 17055124 (Version 1)
Quarter: 2019Q4

REPORT INFORMATION
  Report Type: Spontaneous
  Country: BR (occurrence: BR)
  Receive Date: 20191120
  Receipt Date: 20191120
  Transmission Date: 20200122
  Serious: Yes (Other)
  Sender: FDA-Public Use
  Company Number: BR-AMERICAN REGENT INC-2019002561

PATIENT
  Age: 36 Year
  Sex: Female

DRUGS (2)
  1. VENOFER [Suspect]
     Active Substance: IRON SUCROSE
     Indication: PRODUCT USED FOR UNKNOWN INDICATION
     Dosage: TOTAL 400 MILLIGRAM IN TWO DAYS (400 MG)
     Route: 042
  2. LEVOTHYROXINE. [Concomitant]
     Active Substance: LEVOTHYROXINE
     Indication: HYPOTHYROIDISM
     Dosage: 88 MICROGRAM, QD
     Route: 065

REACTIONS (6)
  - Postpartum haemorrhage [Recovered/Resolved]
  - Nosocomial infection [Recovered/Resolved]
  - Maternal exposure during pregnancy [Unknown]
  - Premature labour [Recovered/Resolved]
  - Premature rupture of membranes [Recovered/Resolved]
  - Blood iron decreased [Unknown]
